FAERS Safety Report 6071477-3 (Version None)
Quarter: 2009Q1

REPORT INFORMATION
  Report Type: 
  Country: None (occurrence: None)
  Receive Date: 20090210
  Receipt Date: 20090128
  Transmission Date: 20090719
  Serious: Yes (Other)
  Sender: FDA-Public Use
  Company Number: FR-RANBAXY-2009RR-21607

PATIENT
  Age: 29 Year
  Sex: Male

DRUGS (1)
  1. ISOTRETINOIN [Suspect]
     Indication: ACNE
     Dosage: 900 MG, UNK

REACTIONS (6)
  - CHEILITIS [None]
  - DRUG TOXICITY [None]
  - HEADACHE [None]
  - OVERDOSE [None]
  - SKIN EXFOLIATION [None]
  - XEROSIS [None]
